FAERS Safety Report 10868691 (Version 1)
Quarter: 2015Q1

REPORT INFORMATION
  Report Type: Report from Study
  Country: US (occurrence: US)
  Receive Date: 20150225
  Receipt Date: 20150225
  Transmission Date: 20150721
  Serious: Yes (Hospitalization, Other)
  Sender: FDA-Public Use
  Company Number: US-GILEAD-2015-0138652

PATIENT
  Age: 64 Year
  Sex: Male

DRUGS (1)
  1. RANOLAZINE [Suspect]
     Active Substance: RANOLAZINE
     Indication: ANGINA PECTORIS
     Dosage: 500 MG, UNK
     Route: 048

REACTIONS (4)
  - Thyroid cancer [Unknown]
  - Cardiac disorder [Unknown]
  - Haemoglobin decreased [Unknown]
  - Renal failure [Unknown]
